FAERS Safety Report 7745614-6 (Version None)
Quarter: 2011Q3

REPORT INFORMATION
  Report Type: 
  Country: None (occurrence: None)
  Receive Date: 20110913
  Receipt Date: 20110830
  Transmission Date: 20111222
  Serious: Yes (Hospitalization, Other)
  Sender: FDA-Public Use
  Company Number: US-ELI_LILLY_AND_COMPANY-US201108006821

PATIENT
  Sex: Female

DRUGS (25)
  1. VITAMIN D [Concomitant]
  2. FUROSEMIDE [Concomitant]
  3. MAGNESIUM [Concomitant]
  4. FORTEO [Suspect]
     Indication: OSTEOPOROSIS
     Dosage: 20 UG, QD
     Dates: start: 20100507
  5. WARFARIN SODIUM [Concomitant]
  6. ASPIRIN [Concomitant]
  7. OMEPRAZOLE [Concomitant]
  8. VITAMIN B-12 [Concomitant]
  9. FERROUS SULFATE TAB [Concomitant]
  10. CRANBERRY [Concomitant]
  11. MULTIVITAMIN [Concomitant]
  12. XOPENEX [Concomitant]
  13. SINGULAIR [Concomitant]
  14. SIMVASTATIN [Concomitant]
  15. CALCITRIOL [Concomitant]
  16. ADVAIR DISKUS 100/50 [Concomitant]
  17. AMBIEN [Concomitant]
     Indication: SLEEP DISORDER
  18. SYNTHROID [Concomitant]
  19. CALCIUM CITRATE [Concomitant]
  20. PRENATAL VITAMINS                  /01549301/ [Concomitant]
  21. MYFORTIC [Concomitant]
  22. SENNA [Concomitant]
  23. TACROLIMUS [Concomitant]
  24. PANGESTYME [Concomitant]
  25. PREDNISONE [Concomitant]

REACTIONS (9)
  - ESCHERICHIA URINARY TRACT INFECTION [None]
  - FALL [None]
  - PAIN IN EXTREMITY [None]
  - ESCHERICHIA BACTERAEMIA [None]
  - BLOOD CREATININE INCREASED [None]
  - DIZZINESS [None]
  - WRIST FRACTURE [None]
  - OSTEONECROSIS [None]
  - UPPER LIMB FRACTURE [None]
